FAERS Safety Report 8322120-1 (Version None)
Quarter: 2012Q2

REPORT INFORMATION
  Report Type: 
  Country: None (occurrence: None)
  Receive Date: 20120430
  Receipt Date: 20120424
  Transmission Date: 20120825
  Serious: Yes (Hospitalization, Other)
  Sender: FDA-Public Use
  Company Number: US-AMGEN-USASP2012021433

PATIENT
  Age: 47 Year
  Sex: Male
  Weight: 79.819 kg

DRUGS (8)
  1. PROCRIT [Suspect]
     Indication: NEPHROGENIC ANAEMIA
     Dosage: UNK UNK, 3 TIMES/WK
     Dates: start: 20100909, end: 20120402
  2. AMLODIPINE [Concomitant]
     Dosage: UNK
  3. CARVEDILOL [Concomitant]
     Dosage: UNK
  4. PREDNISONE TAB [Concomitant]
     Dosage: UNK
  5. NEPHROCAPS [Concomitant]
     Dosage: UNK
  6. ASPIRIN [Concomitant]
     Dosage: UNK
  7. FOSRENOL [Concomitant]
     Dosage: UNK
  8. BLOOD TRANSFUSION, AUXILIARY PRODUCTS [Concomitant]

REACTIONS (4)
  - APLASIA PURE RED CELL [None]
  - HOSPITALISATION [None]
  - MARROW HYPERPLASIA [None]
  - THERAPEUTIC RESPONSE DECREASED [None]
